FAERS Safety Report 6074297-9 (Version None)
Quarter: 2009Q1

REPORT INFORMATION
  Report Type: 
  Country: None (occurrence: None)
  Receive Date: 20090211
  Receipt Date: 20090130
  Transmission Date: 20090719
  Serious: Yes (Other)
  Sender: FDA-Public Use
  Company Number: US-ELI_LILLY_AND_COMPANY-US200902000248

PATIENT
  Age: 82 Year
  Sex: Female

DRUGS (4)
  1. CYMBALTA [Suspect]
     Dosage: 30 MG, UNK
     Dates: start: 20081230, end: 20090111
  2. TOPROL-XL [Concomitant]
  3. OXYTROL /00538901/ [Concomitant]
  4. ACTONEL [Concomitant]

REACTIONS (1)
  - GRAND MAL CONVULSION [None]
